FAERS Safety Report 5511689-8 (Version None)
Quarter: 2007Q4

REPORT INFORMATION
  Report Type: 
  Country: None (occurrence: None)
  Receive Date: 20071109
  Receipt Date: 20071030
  Transmission Date: 20080405
  Serious: Yes (Hospitalization)
  Sender: FDA-Public Use
  Company Number: US-ASTRAZENECA-2007UW01899

PATIENT
  Age: 38 Year
  Sex: Male
  Weight: 128.6 kg

DRUGS (2)
  1. SEROQUEL [Suspect]
     Indication: SLEEP DISORDER
     Dosage: 25-600 MG
     Route: 048
     Dates: start: 20021119, end: 20050315
  2. SEROQUEL [Suspect]
     Indication: DEPRESSION
     Dosage: 25-600 MG
     Route: 048
     Dates: start: 20021119, end: 20050315

REACTIONS (6)
  - BLOOD CHOLESTEROL INCREASED [None]
  - GALLBLADDER OPERATION [None]
  - KNEE OPERATION [None]
  - OBESITY [None]
  - SURGERY [None]
  - TYPE 2 DIABETES MELLITUS [None]
